FAERS Safety Report 8979017 (Version 1)
Quarter: 2012Q4

REPORT INFORMATION
  Report Type: Spontaneous
  Country: US (occurrence: None)
  Receive Date: 20121218
  Receipt Date: 20121218
  Transmission Date: 20130627
  Serious: Yes (Hospitalization)
  Sender: FDA-Public Use
  Company Number: None

PATIENT
  Age: 63 Year
  Sex: Male
  Weight: 116.2 kg

DRUGS (1)
  1. PRIMIDONE [Suspect]
     Dosage: 50

REACTIONS (3)
  - Suicidal ideation [None]
  - Depression [None]
  - Memory impairment [None]
